FAERS Safety Report 16134846 (Version 1)
Quarter: 2019Q1

REPORT INFORMATION
  Report Type: Spontaneous
  Country: RO (occurrence: RO)
  Receive Date: 20190329
  Receipt Date: 20190329
  Transmission Date: 20190418
  Serious: Yes (Hospitalization, Other)
  Sender: FDA-Public Use
  Company Number: RO-JNJFOC-20190342235

PATIENT
  Age: 69 Year
  Sex: Female

DRUGS (1)
  1. XARELTO [Suspect]
     Active Substance: RIVAROXABAN
     Indication: ATRIAL FIBRILLATION
     Route: 048
     Dates: start: 20190121, end: 20190306

REACTIONS (4)
  - Aortic embolus [Unknown]
  - Peripheral ischaemia [Unknown]
  - Lower gastrointestinal haemorrhage [Unknown]
  - Aortic thrombosis [Unknown]

NARRATIVE: CASE EVENT DATE: 20190306
